FAERS Safety Report 6583439-8 (Version None)
Quarter: 2010Q1

REPORT INFORMATION
  Report Type: 
  Country: None (occurrence: None)
  Receive Date: 20100216
  Receipt Date: 20100205
  Transmission Date: 20100710
  Serious: Yes (Hospitalization)
  Sender: FDA-Public Use
  Company Number: FR-WYE-G05568910

PATIENT
  Age: 19 Year
  Sex: Female

DRUGS (3)
  1. TAZOCILLINE [Suspect]
     Dosage: UNKNOWN
     Route: 042
     Dates: start: 20080724, end: 20080729
  2. FORTUM [Concomitant]
     Dosage: UNKNOWN
     Dates: end: 20080701
  3. FORTUM [Concomitant]
     Dosage: UNKNOWN
     Dates: start: 20080729

REACTIONS (1)
  - ANTINUCLEAR ANTIBODY POSITIVE [None]
